FAERS Safety Report 7209206-X (Version None)
Quarter: 2011Q1

REPORT INFORMATION
  Report Type: 
  Country: None (occurrence: None)
  Receive Date: 20110104
  Receipt Date: 20101216
  Transmission Date: 20110831
  Serious: Yes (Hospitalization)
  Sender: FDA-Public Use
  Company Number: A0805429A

PATIENT
  Age: 57 Year
  Sex: Female

DRUGS (1)
  1. AVANDIA [Suspect]
     Dosage: 8MG PER DAY
     Route: 048
     Dates: start: 20030101, end: 20060101

REACTIONS (5)
  - CENTRAL NERVOUS SYSTEM LESION [None]
  - VASCULITIS CEREBRAL [None]
  - CEREBROVASCULAR ACCIDENT [None]
  - HORNER'S SYNDROME [None]
  - SIMPLE PARTIAL SEIZURES [None]
